FAERS Safety Report 20867840 (Version 1)
Quarter: 2022Q2

REPORT INFORMATION
  Report Type: Spontaneous
  Country: CN (occurrence: CN)
  Receive Date: 20220524
  Receipt Date: 20220524
  Transmission Date: 20220721
  Serious: Yes (Other)
  Sender: FDA-Public Use
  Company Number: CN-SCALL-2022-CN-000131

PATIENT
  Age: 26 Year
  Sex: Male
  Weight: 71 kg

DRUGS (4)
  1. RABEPRAZOLE SODIUM [Suspect]
     Active Substance: RABEPRAZOLE SODIUM
     Indication: Helicobacter infection
     Route: 048
     Dates: start: 20220424, end: 20220505
  2. FURAZOLIDONE [Suspect]
     Active Substance: FURAZOLIDONE
     Route: 048
     Dates: start: 20220424, end: 20220505
  3. BISMUTH SUBCITRATE [Suspect]
     Active Substance: BISMUTH SUBCITRATE
     Dosage: 220 MG, 12 HR
     Route: 048
     Dates: start: 20220424, end: 20220505
  4. AMOXICILLIN [Suspect]
     Active Substance: AMOXICILLIN
     Dosage: 1 GM, 12 HR
     Route: 048
     Dates: start: 20220424, end: 20220505

REACTIONS (3)
  - Pruritus [Recovering/Resolving]
  - Rash erythematous [Recovering/Resolving]
  - Rash maculo-papular [Recovering/Resolving]

NARRATIVE: CASE EVENT DATE: 20220504
